FAERS Safety Report 7145936-6 (Version None)
Quarter: 2010Q4

REPORT INFORMATION
  Report Type: 
  Country: None (occurrence: None)
  Receive Date: 20101208
  Receipt Date: 20100317
  Transmission Date: 20110411
  Serious: No
  Sender: FDA-Public Use
  Company Number: US-ABBOTT-10P-163-0633938-00

PATIENT
  Sex: Female

DRUGS (3)
  1. ERYPED [Suspect]
     Indication: OESOPHAGITIS
     Dosage: 400/5 ML  WITH MEALS AND AT HS
  2. ERYPED [Suspect]
     Indication: HIATUS HERNIA
  3. INSULIN [Concomitant]
     Indication: PRODUCT USED FOR UNKNOWN INDICATION

REACTIONS (1)
  - DRUG INEFFECTIVE [None]
